FAERS Safety Report 4617010-1 (Version None)
Quarter: 2005Q1

REPORT INFORMATION
  Report Type: 
  Country: None (occurrence: None)
  Receive Date: 20050318
  Receipt Date: 20050309
  Transmission Date: 20050727
  Serious: Yes (Hospitalization, Other)
  Sender: FDA-Public Use
  Company Number: HQWYE254024NOV03

PATIENT
  Age: 54 Year
  Sex: Female

DRUGS (7)
  1. CYCLOSPORINE [Suspect]
     Indication: PROPHYLAXIS AGAINST TRANSPLANT REJECTION
     Dosage: SEE IMAGE
     Route: 048
     Dates: start: 20021018, end: 20020101
  2. AZATHIOPRINE [Concomitant]
  3. CAPTOPRIL [Concomitant]
  4. LASIX [Concomitant]
  5. PREDNISONE [Concomitant]
  6. RANITIDINE [Concomitant]
  7. SIMVASTATIN [Concomitant]

REACTIONS (3)
  - ADENOCARCINOMA OF THE CERVIX [None]
  - CERVIX CARCINOMA STAGE II [None]
  - HAEMOGLOBIN DECREASED [None]
